FAERS Safety Report 10286635 (Version 2)
Quarter: 2014Q3

REPORT INFORMATION
  Report Type: Spontaneous
  Country: FR (occurrence: FR)
  Receive Date: 20140709
  Receipt Date: 20140715
  Transmission Date: 20150326
  Serious: Yes (Life-Threatening)
  Sender: FDA-Public Use
  Company Number: FR-SA-2014SA086904

PATIENT
  Age: 25 Year
  Sex: Female
  Weight: 55 kg

DRUGS (14)
  1. TEMESTA [Concomitant]
     Active Substance: LORAZEPAM
  2. PIRILENE [Suspect]
     Active Substance: PYRAZINAMIDE
     Indication: PRODUCT USED FOR UNKNOWN INDICATION
     Route: 048
     Dates: start: 20140221
  3. MYAMBUTOL [Suspect]
     Active Substance: ETHAMBUTOL HYDROCHLORIDE
     Indication: TUBERCULOSIS
     Route: 048
     Dates: start: 20140221, end: 20140308
  4. RIFATER [Concomitant]
     Active Substance: ISONIAZID\PYRAZINAMIDE\RIFAMPIN
     Dates: end: 20140227
  5. LOVENOX [Concomitant]
     Active Substance: ENOXAPARIN SODIUM
  6. BENERVA [Concomitant]
     Active Substance: THIAMINE
     Route: 042
  7. PYRIDOXINE [Concomitant]
     Active Substance: PYRIDOXINE
     Route: 042
  8. VITAMIN PP [Concomitant]
     Route: 042
  9. ZOPICLONE [Concomitant]
     Active Substance: ZOPICLONE
     Indication: INSOMNIA
     Route: 048
  10. METOCLOPRAMIDE HYDROCHLORIDE. [Concomitant]
     Active Substance: METOCLOPRAMIDE HYDROCHLORIDE
     Route: 042
  11. DIAZEPAM. [Concomitant]
     Active Substance: DIAZEPAM
     Route: 042
  12. PARACETAMOL [Concomitant]
     Active Substance: ACETAMINOPHEN
     Indication: PAIN
     Route: 042
  13. RIFADINE [Suspect]
     Active Substance: RIFAMPIN
     Indication: TUBERCULOSIS
     Route: 042
     Dates: start: 20140221, end: 20140308
  14. RIMIFON [Suspect]
     Active Substance: ISONIAZID
     Indication: TUBERCULOSIS
     Route: 042
     Dates: start: 20140221

REACTIONS (3)
  - Cerebral venous thrombosis [Unknown]
  - Overdose [Unknown]
  - Status epilepticus [Recovered/Resolved]

NARRATIVE: CASE EVENT DATE: 2014
